FAERS Safety Report 24463929 (Version 1)
Quarter: 2024Q4

REPORT INFORMATION
  Report Type: Report from Study
  Country: US (occurrence: US)
  Receive Date: 20241018
  Receipt Date: 20241018
  Transmission Date: 20250115
  Serious: No
  Sender: ROCHE
  Company Number: US-ROCHE-3496220

PATIENT
  Sex: Female

DRUGS (10)
  1. XOLAIR [Suspect]
     Active Substance: OMALIZUMAB
     Indication: Chronic spontaneous urticaria
     Route: 058
     Dates: start: 20220223
  2. XOLAIR [Suspect]
     Active Substance: OMALIZUMAB
     Indication: Idiopathic urticaria
  3. SINGULAIR [Concomitant]
     Active Substance: MONTELUKAST SODIUM
  4. VITAMIN C [Concomitant]
     Active Substance: ASCORBIC ACID
  5. PEPCID [Concomitant]
     Active Substance: FAMOTIDINE
  6. IRON [Concomitant]
     Active Substance: IRON
  7. PREDNISONE [Concomitant]
     Active Substance: PREDNISONE
  8. BENADRYL [Concomitant]
     Active Substance: DIPHENHYDRAMINE HYDROCHLORIDE
  9. PLAQUENIL [Concomitant]
     Active Substance: HYDROXYCHLOROQUINE SULFATE
  10. ACCOLATE [Concomitant]
     Active Substance: ZAFIRLUKAST

REACTIONS (4)
  - Rhinitis allergic [Unknown]
  - Conjunctivitis allergic [Unknown]
  - Dizziness [Unknown]
  - Hypermobility syndrome [Unknown]
